FAERS Safety Report 19355545 (Version 1)
Quarter: 2021Q2

REPORT INFORMATION
  Report Type: Spontaneous
  Country: US (occurrence: US)
  Receive Date: 20210531
  Receipt Date: 20210531
  Transmission Date: 20210717
  Serious: Yes (Other)
  Sender: FDA-Public Use
  Company Number: US-PURDUE-USA-2020-0159368

PATIENT
  Sex: Female

DRUGS (1)
  1. OXYCODONE HCL TABLETS (RHODES 91?490) [Suspect]
     Active Substance: OXYCODONE HYDROCHLORIDE
     Indication: PRODUCT USED FOR UNKNOWN INDICATION
     Dosage: UNK
     Route: 048

REACTIONS (11)
  - Vomiting [Unknown]
  - Sleep disorder [Unknown]
  - Nausea [Unknown]
  - Migraine [Unknown]
  - Diarrhoea [Unknown]
  - Drug withdrawal syndrome [Unknown]
  - Cluster headache [Unknown]
  - Anxiety [Unknown]
  - Drug dependence [Unknown]
  - Sensory disturbance [Unknown]
  - Hyperhidrosis [Unknown]
